FAERS Safety Report 16455045 (Version 4)
Quarter: 2019Q3

REPORT INFORMATION
  Report Type: Report from Study
  Country: US (occurrence: US)
  Receive Date: 20190619
  Receipt Date: 20190828
  Transmission Date: 20191004
  Serious: Yes (Hospitalization)
  Sender: FDA-Public Use
  Company Number: PHEH2019US025584

PATIENT
  Sex: Female

DRUGS (1)
  1. ENTRESTO [Suspect]
     Active Substance: SACUBITRIL\VALSARTAN
     Indication: PRODUCT USED FOR UNKNOWN INDICATION
     Dosage: UNK, BID
     Route: 048

REACTIONS (11)
  - Dyspnoea [Unknown]
  - Muscle tightness [Unknown]
  - Myocardial infarction [Unknown]
  - Weight increased [Unknown]
  - Peripheral swelling [Unknown]
  - Dizziness [Unknown]
  - Fluid retention [Unknown]
  - Somnolence [Unknown]
  - Fatigue [Unknown]
  - Cough [Unknown]
  - Myalgia [Unknown]
